FAERS Safety Report 7047277-4 (Version None)
Quarter: 2010Q4

REPORT INFORMATION
  Report Type: 
  Country: None (occurrence: None)
  Receive Date: 20101015
  Receipt Date: 20101006
  Transmission Date: 20110411
  Serious: Yes (Other)
  Sender: FDA-Public Use
  Company Number: US-ASTRAZENECA-2010SE47224

PATIENT
  Age: 65 Year
  Sex: Male

DRUGS (3)
  1. CRESTOR [Suspect]
     Route: 048
     Dates: start: 20100101, end: 20100101
  2. CRESTOR [Suspect]
     Route: 048
     Dates: start: 20100101, end: 20100101
  3. TRILIPIX [Concomitant]
     Dates: start: 20100101, end: 20100101

REACTIONS (1)
  - RENAL FAILURE [None]
